FAERS Safety Report 15591020 (Version 1)
Quarter: 2018Q4

REPORT INFORMATION
  Report Type: Spontaneous
  Country: US (occurrence: US)
  Receive Date: 20181107
  Receipt Date: 20181107
  Transmission Date: 20190205
  Serious: Yes (Death, Hospitalization, Other)
  Sender: FDA-Public Use
  Company Number: US-GLAXOSMITHKLINE-US2018200140

PATIENT
  Age: 81 Year
  Sex: Female

DRUGS (1)
  1. ADVAIR DISKUS [Suspect]
     Active Substance: FLUTICASONE PROPIONATE\SALMETEROL XINAFOATE
     Indication: PRODUCT USED FOR UNKNOWN INDICATION
     Dosage: 1 PUFF(S), QD

REACTIONS (4)
  - Underdose [Unknown]
  - Intentional product misuse [Unknown]
  - Lung neoplasm malignant [Fatal]
  - Hospitalisation [Unknown]

NARRATIVE: CASE EVENT DATE: 20180401
